FAERS Safety Report 8975508 (Version 1)
Quarter: 2012Q4

REPORT INFORMATION
  Report Type: 
  Country: FR (occurrence: FR)
  Receive Date: 20121219
  Receipt Date: 20121219
  Transmission Date: 20130627
  Serious: Yes (Hospitalization)
  Sender: FDA-Public Use
  Company Number: FR-ABBOTT-12P-056-1022834-00

PATIENT
  Age: 76 Year
  Sex: Male

DRUGS (9)
  1. HUMIRA [Suspect]
     Indication: RHEUMATOID ARTHRITIS
  2. JOSAMYCINE [Suspect]
     Indication: EAR INFECTION
     Route: 048
     Dates: start: 20120918
  3. JOSAMYCINE [Suspect]
     Indication: PHARYNGITIS
  4. JOSAMYCINE [Suspect]
     Indication: EAR INFECTION
  5. POLERY ADULTE [Suspect]
     Indication: RHINITIS
     Route: 048
     Dates: start: 20120918
  6. POLERY ADULTE [Suspect]
     Indication: RHINITIS
  7. POLERY ADULTE [Suspect]
     Indication: PHARYNGITIS
  8. CORTANCYL [Concomitant]
     Indication: RHEUMATOID ARTHRITIS
     Route: 048
  9. METHOTREXATE BIGMAR [Concomitant]
     Indication: RHEUMATOID ARTHRITIS
     Route: 048
     Dates: start: 200911

REACTIONS (1)
  - Grand mal convulsion [Recovered/Resolved]
